FAERS Safety Report 24191343 (Version 1)
Quarter: 2024Q3

REPORT INFORMATION
  Report Type: Spontaneous
  Country: PT (occurrence: PT)
  Receive Date: 20240808
  Receipt Date: 20240808
  Transmission Date: 20241016
  Serious: Yes (Other)
  Sender: MYLAN
  Company Number: None

PATIENT
  Age: 40 Year
  Sex: Female

DRUGS (4)
  1. GLATIRAMER [Suspect]
     Active Substance: GLATIRAMER
     Indication: Multiple sclerosis relapse
     Dosage: 120 MILLIGRAM, QW (1 INJECTION THREE TIMES A WEEK WITH AN INTERVAL OF AT LEAST 48 HOURS)
     Route: 058
     Dates: start: 20240522, end: 20240617
  2. GLATIRAMER [Suspect]
     Active Substance: GLATIRAMER
     Dosage: 120 MILLIGRAM, QW (1 INJECTION THREE TIMES A WEEK WITH AN INTERVAL OF AT LEAST 48 HOURS)
     Route: 058
     Dates: start: 20240619, end: 20240724
  3. Medipax [Concomitant]
     Indication: Product used for unknown indication
     Dosage: UNKNOWN
     Route: 065
  4. FLUOXETINE HYDROCHLORIDE [Concomitant]
     Active Substance: FLUOXETINE HYDROCHLORIDE
     Indication: Product used for unknown indication
     Dosage: UNK
     Route: 065

REACTIONS (5)
  - Administration site pruritus [Recovered/Resolved]
  - Administration site swelling [Recovered/Resolved]
  - Administration site eczema [Recovered/Resolved]
  - Administration site pustule [Recovered/Resolved]
  - Administration site erythema [Recovered/Resolved]

NARRATIVE: CASE EVENT DATE: 20240525
